FAERS Safety Report 6516251-6 (Version None)
Quarter: 2009Q4

REPORT INFORMATION
  Report Type: 
  Country: None (occurrence: None)
  Receive Date: 20091223
  Receipt Date: 20091217
  Transmission Date: 20100525
  Serious: Yes (Death, Hospitalization, Other)
  Sender: FDA-Public Use
  Company Number: US-BAXTER-2009BH005081

PATIENT
  Age: 80 Year
  Sex: Female

DRUGS (1)
  1. HEPARIN SODIUM INJECTION [Suspect]
     Indication: PROPHYLAXIS
     Route: 065
     Dates: start: 20080101, end: 20080101

REACTIONS (3)
  - ANAEMIA [None]
  - DEATH [None]
  - THROMBOSIS [None]
